FAERS Safety Report 12484268 (Version 1)
Quarter: 2016Q2

REPORT INFORMATION
  Report Type: Spontaneous
  Country: DE (occurrence: DE)
  Receive Date: 20160621
  Receipt Date: 20160621
  Transmission Date: 20160815
  Serious: Yes (Other)
  Sender: FDA-Public Use
  Company Number: GXKR2016DE002772

PATIENT
  Age: 88 Year
  Sex: Female

DRUGS (1)
  1. METOHEXAL SUCC [Suspect]
     Active Substance: METOPROLOL SUCCINATE
     Indication: ATRIAL FIBRILLATION
     Dosage: UNK UKN, UNK
     Route: 048

REACTIONS (3)
  - Dyspnoea [Unknown]
  - Vision blurred [Unknown]
  - Pulmonary oedema [Unknown]
